FAERS Safety Report 21814984 (Version 1)
Quarter: 2023Q1

REPORT INFORMATION
  Report Type: Spontaneous
  Country: TR (occurrence: TR)
  Receive Date: 20230104
  Receipt Date: 20230104
  Transmission Date: 20230417
  Serious: Yes (Other)
  Sender: FDA-Public Use
  Company Number: TR-002147023-NVSC2022TR289293

PATIENT
  Age: 29 Year
  Sex: Female
  Weight: 49 kg

DRUGS (5)
  1. XOLAIR [Suspect]
     Active Substance: OMALIZUMAB
     Indication: Asthma
     Dosage: UNK
     Route: 065
  2. XOLAIR [Suspect]
     Active Substance: OMALIZUMAB
     Dosage: 300 MG, EVERY 4 WEEKS (WAS USED ON 09 DEC 2022)
     Route: 058
     Dates: start: 20221110, end: 20221210
  3. SERETIDE [Concomitant]
     Active Substance: FLUTICASONE PROPIONATE\SALMETEROL XINAFOATE
     Indication: Asthma
     Dosage: 2 DOSAGE FORM, QD
     Dates: start: 20141009
  4. CREBROS [Concomitant]
     Indication: Rhinitis allergic
     Dosage: 1 DOSAGE FORM, QD
     Dates: start: 20141009
  5. SINGULAIR [Concomitant]
     Active Substance: MONTELUKAST SODIUM
     Indication: Asthma
     Dosage: 1 DOSAGE FORM, QD
     Dates: start: 20141009, end: 20221226

REACTIONS (9)
  - Gastrointestinal pain [Recovered/Resolved]
  - Peripheral swelling [Recovered/Resolved]
  - Hypoaesthesia [Recovered/Resolved]
  - Myalgia [Recovering/Resolving]
  - Abdominal pain upper [Recovered/Resolved]
  - Diarrhoea [Recovered/Resolved]
  - Nausea [Recovered/Resolved]
  - Abdominal pain [Recovered/Resolved]
  - Emotional distress [Recovered/Resolved]

NARRATIVE: CASE EVENT DATE: 20221210
